FAERS Safety Report 19669725 (Version 1)
Quarter: 2021Q3

REPORT INFORMATION
  Report Type: Spontaneous
  Country: AU (occurrence: AU)
  Receive Date: 20210806
  Receipt Date: 20210806
  Transmission Date: 20211014
  Serious: Yes (Other)
  Sender: FDA-Public Use
  Company Number: AU-AMGEN-AUSSP2021119082

PATIENT
  Age: 64 Year

DRUGS (1)
  1. PROLIA [Suspect]
     Active Substance: DENOSUMAB
     Indication: PRODUCT USED FOR UNKNOWN INDICATION
     Dosage: UNK, Q6MO
     Route: 065

REACTIONS (5)
  - Bursitis [Unknown]
  - Lumbar vertebral fracture [Unknown]
  - Hypotension [Unknown]
  - Fall [Unknown]
  - Cervical vertebral fracture [Unknown]
